FAERS Safety Report 17055879 (Version 1)
Quarter: 2019Q4

REPORT INFORMATION
  Report Type: Spontaneous
  Country: US (occurrence: US)
  Receive Date: 20191120
  Receipt Date: 20191120
  Transmission Date: 20200122
  Serious: No
  Sender: FDA-Public Use
  Company Number: US-LUPIN PHARMACEUTICALS INC.-2019-02221

PATIENT
  Age: 60 Year
  Sex: Male
  Weight: 126.98 kg

DRUGS (1)
  1. METFORMIN HYDROCHLORIDE EXTENDED RELEASE TABLET USP 1000 MG [Suspect]
     Active Substance: METFORMIN HYDROCHLORIDE
     Indication: TYPE 2 DIABETES MELLITUS
     Dosage: UNK UNK, QD (18 YEARS AGO)
     Route: 048

REACTIONS (1)
  - Oesophageal irritation [Not Recovered/Not Resolved]

NARRATIVE: CASE EVENT DATE: 20190315
